FAERS Safety Report 7303371-1 (Version None)
Quarter: 2011Q1

REPORT INFORMATION
  Report Type: 
  Country: None (occurrence: None)
  Receive Date: 20110221
  Receipt Date: 20110207
  Transmission Date: 20110831
  Serious: Yes (Other)
  Sender: FDA-Public Use
  Company Number: US-ELI_LILLY_AND_COMPANY-US201006004955

PATIENT
  Sex: Female

DRUGS (1)
  1. FORTEO [Suspect]
     Indication: OSTEOPOROSIS
     Dosage: 20 UG, DAILY (1/D)
     Route: 058
     Dates: start: 20100901

REACTIONS (7)
  - NASOPHARYNGITIS [None]
  - TYPE 1 DIABETES MELLITUS [None]
  - COUGH [None]
  - CONFUSIONAL STATE [None]
  - MULTIPLE SCLEROSIS [None]
  - BONE PAIN [None]
  - MALAISE [None]
